FAERS Safety Report 20954044 (Version 1)
Quarter: 2022Q2

REPORT INFORMATION
  Report Type: Spontaneous
  Country: TH (occurrence: None)
  Receive Date: 20220614
  Receipt Date: 20220614
  Transmission Date: 20220720
  Serious: Yes (Other)
  Sender: FDA-Public Use
  Company Number: TH-SUPERNUS Pharmaceuticals, Inc.-SUP202206-001562

PATIENT
  Age: 25 Year
  Sex: Female

DRUGS (1)
  1. OXCARBAZEPINE [Suspect]
     Active Substance: OXCARBAZEPINE
     Indication: Epilepsy
     Dosage: NOT PROVIDED

REACTIONS (2)
  - Autoimmune thyroiditis [Unknown]
  - Drug reaction with eosinophilia and systemic symptoms [Unknown]
